FAERS Safety Report 10207572 (Version 1)
Quarter: 2014Q2

REPORT INFORMATION
  Report Type: Spontaneous
  Country: US (occurrence: US)
  Receive Date: 20140530
  Receipt Date: 20140530
  Transmission Date: 20141212
  Serious: No
  Sender: FDA-Public Use
  Company Number: US-GLAXOSMITHKLINE-A1050615A

PATIENT
  Age: 56 Year
  Sex: Male

DRUGS (5)
  1. VENTOLIN HFA [Suspect]
     Indication: NOCTURNAL DYSPNOEA
     Dosage: 2PUFF FOUR TIMES PER DAY
     Route: 055
     Dates: start: 20131112, end: 20131112
  2. ARTANE [Concomitant]
  3. PROLIXIN [Concomitant]
  4. XANAX [Concomitant]
  5. BENADRYL [Concomitant]

REACTIONS (4)
  - Dizziness [Not Recovered/Not Resolved]
  - Feeling jittery [Not Recovered/Not Resolved]
  - Malaise [Not Recovered/Not Resolved]
  - Inappropriate schedule of drug administration [Recovered/Resolved]
